FAERS Safety Report 9970561 (Version 1)
Quarter: 2014Q1

REPORT INFORMATION
  Report Type: Spontaneous
  Country: US (occurrence: None)
  Receive Date: 20140305
  Receipt Date: 20140305
  Transmission Date: 20141002
  Serious: Yes (Other)
  Sender: FDA-Public Use
  Company Number: None

PATIENT
  Age: 36 Year
  Sex: Female
  Weight: 43.55 kg

DRUGS (1)
  1. ALKA-SELTZER PLUS [Suspect]
     Indication: NASOPHARYNGITIS
     Dosage: 2 PILLS, ONCE DAILY, TAKEN BY MOUTH
     Route: 048
     Dates: start: 20140227, end: 20140228

REACTIONS (3)
  - Depressed level of consciousness [None]
  - Palpitations [None]
  - Heart rate increased [None]
